FAERS Safety Report 4303706-8 (Version None)
Quarter: 2004Q1

REPORT INFORMATION
  Report Type: 
  Country: None (occurrence: None)
  Receive Date: 20040220
  Receipt Date: 20030124
  Transmission Date: 20041129
  Serious: Yes (Other)
  Sender: FDA-Public Use
  Company Number: PHEH2003US01157

PATIENT
  Age: 43 Year

DRUGS (1)
  1. VIVELLE-DOT [Suspect]
     Indication: HYSTERECTOMY
     Dosage: SEE IMAGE

REACTIONS (1)
  - DEEP VEIN THROMBOSIS [None]
